FAERS Safety Report 6816153-1 (Version None)
Quarter: 2010Q3

REPORT INFORMATION
  Report Type: 
  Country: None (occurrence: None)
  Receive Date: 20100702
  Receipt Date: 20100702
  Transmission Date: 20110219
  Serious: No
  Sender: FDA-Public Use
  Company Number: None

PATIENT
  Age: 54 Year
  Sex: Female
  Weight: 55.3388 kg

DRUGS (6)
  1. MELOXICAM [Suspect]
     Indication: MUSCULOSKELETAL PAIN
     Dosage: 1 CAP 1 TO 2 TABS DAILY PO
     Route: 048
     Dates: start: 20100629, end: 20100629
  2. MELOXICAM [Suspect]
     Indication: NECK PAIN
     Dosage: 1 CAP 1 TO 2 TABS DAILY PO
     Route: 048
     Dates: start: 20100629, end: 20100629
  3. MELOXICAM [Suspect]
     Indication: PAIN IN EXTREMITY
     Dosage: 1 CAP 1 TO 2 TABS DAILY PO
     Route: 048
     Dates: start: 20100629, end: 20100629
  4. LYRICA [Suspect]
     Indication: MUSCULOSKELETAL PAIN
     Dosage: 1 CAP TWICE A DAY PO
     Route: 048
     Dates: start: 20100629, end: 20100629
  5. LYRICA [Suspect]
     Indication: NECK PAIN
     Dosage: 1 CAP TWICE A DAY PO
     Route: 048
     Dates: start: 20100629, end: 20100629
  6. LYRICA [Suspect]
     Indication: PAIN IN EXTREMITY
     Dosage: 1 CAP TWICE A DAY PO
     Route: 048
     Dates: start: 20100629, end: 20100629

REACTIONS (8)
  - DRY MOUTH [None]
  - ERYTHEMA [None]
  - EYE SWELLING [None]
  - FEELING HOT [None]
  - LOCAL SWELLING [None]
  - PALPITATIONS [None]
  - RASH [None]
  - SWELLING FACE [None]
